FAERS Safety Report 6542590-9 (Version None)
Quarter: 2010Q1

REPORT INFORMATION
  Report Type: 
  Country: None (occurrence: None)
  Receive Date: 20100119
  Receipt Date: 20100113
  Transmission Date: 20100710
  Serious: Yes (Other)
  Sender: FDA-Public Use
  Company Number: FR-AMGEN-UK385528

PATIENT
  Sex: Female

DRUGS (2)
  1. NPLATE [Suspect]
     Indication: IDIOPATHIC THROMBOCYTOPENIC PURPURA
     Dates: start: 20090808, end: 20100105
  2. UNSPECIFIED TOPICAL PRODUCT [Concomitant]
     Route: 061

REACTIONS (4)
  - ECZEMA [None]
  - HYPERSENSITIVITY [None]
  - RASH [None]
  - SKIN CHAPPED [None]
